FAERS Safety Report 6972950-3 (Version None)
Quarter: 2010Q3

REPORT INFORMATION
  Report Type: 
  Country: None (occurrence: None)
  Receive Date: 20100909
  Receipt Date: 20100602
  Transmission Date: 20110219
  Serious: No
  Sender: FDA-Public Use
  Company Number: US-KINGPHARMUSA00001-K201000690

PATIENT
  Age: 20 Year
  Sex: Female

DRUGS (6)
  1. EMBEDA [Suspect]
     Indication: BACK PAIN
     Dosage: 20 MG, QD
     Route: 048
     Dates: start: 20100519, end: 20100521
  2. EMBEDA [Suspect]
     Dosage: 40 MG, QD
     Route: 048
     Dates: start: 20100521, end: 20100531
  3. EMBEDA [Suspect]
     Dosage: 80 MG, QD
     Route: 048
     Dates: start: 20100601
  4. AMBIEN [Concomitant]
     Indication: INSOMNIA
     Dosage: 10 MG, QD
  5. LEVONORGESTREL + ETHINYL ESTRADIOL [Concomitant]
     Indication: ORAL CONTRACEPTION
     Dosage: UNK
  6. CYMBALTA [Concomitant]
     Indication: DEPRESSION
     Dosage: 60 MG, QD

REACTIONS (2)
  - DRUG INEFFECTIVE [None]
  - INSOMNIA [None]
